FAERS Safety Report 24667836 (Version 1)
Quarter: 2024Q4

REPORT INFORMATION
  Report Type: Spontaneous
  Country: FR (occurrence: FR)
  Receive Date: 20241127
  Receipt Date: 20241127
  Transmission Date: 20250114
  Serious: Yes (Hospitalization)
  Sender: ROCHE
  Company Number: FR-002147023-PHHY2010FR37935

PATIENT
  Age: 71 Year
  Sex: Female
  Weight: 70 kg

DRUGS (1)
  1. LUCENTIS [Suspect]
     Active Substance: RANIBIZUMAB
     Indication: Age-related macular degeneration
     Dosage: UNK
     Route: 050
     Dates: start: 200903

REACTIONS (5)
  - Acute respiratory failure [Unknown]
  - Acute pulmonary oedema [Recovered/Resolved]
  - Ejection fraction decreased [Unknown]
  - Eyelid oedema [Unknown]
  - Eye inflammation [Unknown]

NARRATIVE: CASE EVENT DATE: 20100601
